FAERS Safety Report 15658187 (Version 1)
Quarter: 2018Q4

REPORT INFORMATION
  Report Type: Spontaneous
  Country: GB (occurrence: GB)
  Receive Date: 20181126
  Receipt Date: 20181126
  Transmission Date: 20190205
  Serious: Yes (Other)
  Sender: FDA-Public Use
  Company Number: GB-PFIZER INC-2018480329

PATIENT
  Age: 44 Year
  Sex: Female
  Weight: 52 kg

DRUGS (4)
  1. CLINDAMYCIN HCL [Suspect]
     Active Substance: CLINDAMYCIN HYDROCHLORIDE
     Indication: SURGERY
     Dosage: 150 MG, UNK
     Route: 048
  2. IBUPROFEN. [Concomitant]
     Active Substance: IBUPROFEN
     Dosage: UNK
  3. CODEINE PHOSPHATE [Concomitant]
     Active Substance: CODEINE PHOSPHATE
     Dosage: UNK
  4. PARACETAMOL [Concomitant]
     Active Substance: ACETAMINOPHEN
     Dosage: UNK

REACTIONS (3)
  - Oropharyngeal pain [Recovering/Resolving]
  - Glossodynia [Recovering/Resolving]
  - Sensation of foreign body [Recovering/Resolving]

NARRATIVE: CASE EVENT DATE: 20181021
